FAERS Safety Report 8731628 (Version 3)
Quarter: 2012Q4

REPORT INFORMATION
  Report Type: 
  Country: US (occurrence: US)
  Receive Date: 20120820
  Receipt Date: 20121129
  Transmission Date: 20130627
  Serious: No
  Sender: FDA-Public Use
  Company Number: US-ASTELLAS-2012US006869

PATIENT
  Sex: Male

DRUGS (2)
  1. PROGRAF [Suspect]
     Indication: STEM CELL TRANSPLANT
     Dosage: 5 mg, UID/QD
     Route: 048
     Dates: start: 20071107, end: 20120803
  2. PROGRAF [Suspect]
     Indication: GRAFT VERSUS HOST DISEASE

REACTIONS (1)
  - Off label use [Unknown]
